FAERS Safety Report 18251323 (Version 1)
Quarter: 2020Q3

REPORT INFORMATION
  Report Type: Spontaneous
  Country: US (occurrence: US)
  Receive Date: 20200910
  Receipt Date: 20200910
  Transmission Date: 20201103
  Serious: Yes (Hospitalization, Other)
  Sender: FDA-Public Use
  Company Number: US-NOVEN PHARMACEUTICALS, INC.-2020US004963

PATIENT
  Sex: Female
  Weight: 63.04 kg

DRUGS (5)
  1. IBUPROFEN. [Concomitant]
     Active Substance: IBUPROFEN
     Indication: ARTHRALGIA
     Dosage: UNK
  2. MINIVELLE [Suspect]
     Active Substance: ESTRADIOL
     Indication: MENOPAUSAL SYMPTOMS
     Dosage: 0.05 MG, FREQUENCY UNKNOWN
     Route: 062
     Dates: start: 2017
  3. MINIVELLE [Suspect]
     Active Substance: ESTRADIOL
     Dosage: 0.075 MG, FREQUENCY UNKNOWN
     Route: 062
     Dates: end: 201910
  4. LYRICA [Concomitant]
     Active Substance: PREGABALIN
     Indication: MIGRAINE
     Dosage: UNK
     Route: 065
  5. KLONOPIN [Concomitant]
     Active Substance: CLONAZEPAM
     Indication: PRODUCT USED FOR UNKNOWN INDICATION
     Dosage: UNK
     Route: 065

REACTIONS (7)
  - Exostosis [Recovered/Resolved]
  - Acne [Unknown]
  - Product administered at inappropriate site [Recovered/Resolved]
  - Incorrect product administration duration [Recovered/Resolved]
  - Weight increased [Unknown]
  - Breast tenderness [Unknown]
  - Ovarian cyst [Recovered/Resolved]
